FAERS Safety Report 7779900-0 (Version None)
Quarter: 2011Q3

REPORT INFORMATION
  Report Type: 
  Country: None (occurrence: None)
  Receive Date: 20110927
  Receipt Date: 20110831
  Transmission Date: 20111222
  Serious: No
  Sender: FDA-Public Use
  Company Number: US-MYLANLABS-2011S1018378

PATIENT
  Age: 49 Year
  Sex: Female
  Weight: 58.97 kg

DRUGS (2)
  1. NIFEDIPINE [Suspect]
     Indication: BLOOD PRESSURE INCREASED
     Route: 048
     Dates: start: 20110601, end: 20110701
  2. BENICAR [Concomitant]
     Indication: BLOOD PRESSURE INCREASED
     Dosage: 1/2 OF A 20MG TABLET
     Dates: start: 20090101

REACTIONS (2)
  - DRUG INEFFECTIVE [None]
  - BLOOD PRESSURE INCREASED [None]
